FAERS Safety Report 16467879 (Version 1)
Quarter: 2019Q2

REPORT INFORMATION
  Report Type: Report from Study
  Country: CO (occurrence: CO)
  Receive Date: 20190624
  Receipt Date: 20190624
  Transmission Date: 20190711
  Serious: Yes (Death, Hospitalization)
  Sender: FDA-Public Use
  Company Number: CO-BAYER-2019-112492

PATIENT
  Age: 61 Year
  Sex: Female

DRUGS (1)
  1. ADEMPAS [Suspect]
     Active Substance: RIOCIGUAT
     Indication: PULMONARY HYPERTENSION
     Dosage: 2.5 MG
     Dates: start: 20151208, end: 201901

REACTIONS (4)
  - Death [Fatal]
  - Product supply issue [None]
  - Pulmonary hypertension [Unknown]
  - Incorrect product administration duration [None]

NARRATIVE: CASE EVENT DATE: 2019
